FAERS Safety Report 13697117 (Version 1)
Quarter: 2017Q2

REPORT INFORMATION
  Report Type: Spontaneous
  Country: BE (occurrence: BE)
  Receive Date: 20170628
  Receipt Date: 20170628
  Transmission Date: 20170830
  Serious: Yes (Hospitalization, Other)
  Sender: FDA-Public Use
  Company Number: BE-BAYER-2017-118741

PATIENT
  Sex: Female
  Weight: 68 kg

DRUGS (1)
  1. MIRENA [Suspect]
     Active Substance: LEVONORGESTREL
     Indication: CONTRACEPTION
     Dosage: 20 MCG/24HR, CONT
     Route: 015
     Dates: start: 201203

REACTIONS (23)
  - Alopecia [Not Recovered/Not Resolved]
  - Hair texture abnormal [Not Recovered/Not Resolved]
  - Breast cyst [Not Recovered/Not Resolved]
  - Acne [Not Recovered/Not Resolved]
  - Trichorrhexis [Not Recovered/Not Resolved]
  - Vomiting [Not Recovered/Not Resolved]
  - Nausea [Not Recovered/Not Resolved]
  - Myalgia [Not Recovered/Not Resolved]
  - Breast pain [Not Recovered/Not Resolved]
  - Lactation puerperal increased [Not Recovered/Not Resolved]
  - Weight increased [Not Recovered/Not Resolved]
  - Back pain [Not Recovered/Not Resolved]
  - Sciatica [Not Recovered/Not Resolved]
  - Bromhidrosis [Not Recovered/Not Resolved]
  - Hirsutism [Not Recovered/Not Resolved]
  - Paraesthesia [Not Recovered/Not Resolved]
  - Dysstasia [Not Recovered/Not Resolved]
  - Abdominal distension [Not Recovered/Not Resolved]
  - Change of bowel habit [Not Recovered/Not Resolved]
  - Vaginal discharge [Not Recovered/Not Resolved]
  - Migraine [Not Recovered/Not Resolved]
  - Libido decreased [Not Recovered/Not Resolved]
  - Abasia [Not Recovered/Not Resolved]

NARRATIVE: CASE EVENT DATE: 2014
